FAERS Safety Report 8158094-6 (Version None)
Quarter: 2012Q1

REPORT INFORMATION
  Report Type: 
  Country: None (occurrence: None)
  Receive Date: 20120222
  Receipt Date: 20120217
  Transmission Date: 20120608
  Serious: Yes (Disabling, Other)
  Sender: FDA-Public Use
  Company Number: PHHY2012MX014293

PATIENT
  Sex: Female

DRUGS (4)
  1. MELOXICAM [Concomitant]
     Indication: PAIN
     Dosage: 1 DF, UNK
     Dates: start: 20120201
  2. ZOLEDRONOC ACID [Suspect]
     Indication: OSTEOPOROSIS
     Dosage: 5 MG/100 ML PER YEAR
     Route: 042
     Dates: start: 20111001
  3. DICLOFENAC SODIUM [Concomitant]
     Indication: ANTIINFLAMMATORY THERAPY
     Dosage: 1 DF, UNK
  4. CHOLESTYRAMINE [Concomitant]
     Indication: ANTIINFLAMMATORY THERAPY
     Dosage: 1 DF, UNK

REACTIONS (7)
  - CHEST PAIN [None]
  - HEADACHE [None]
  - MUSCULOSKELETAL PAIN [None]
  - INSOMNIA [None]
  - ARTHRALGIA [None]
  - FOOT FRACTURE [None]
  - BLOOD PRESSURE INCREASED [None]
